FAERS Safety Report 7521805-4 (Version None)
Quarter: 2011Q2

REPORT INFORMATION
  Report Type: 
  Country: None (occurrence: None)
  Receive Date: 20110603
  Receipt Date: 20090930
  Transmission Date: 20111010
  Serious: Yes (Other)
  Sender: FDA-Public Use
  Company Number: US-BAYER-200934859NA

PATIENT
  Age: 64 Year
  Sex: Male
  Weight: 119.73 kg

DRUGS (15)
  1. METFORMIN HCL [Concomitant]
     Dosage: 500 MG, QD
     Route: 048
  2. ALLOPURINOL [Concomitant]
     Dosage: 300 MG, QD
     Route: 048
  3. DIOVAN [Concomitant]
     Dosage: 80 MG, QD
     Route: 048
  4. HEPARIN [Concomitant]
     Dosage: 30000 U, UNK
     Route: 042
     Dates: start: 20060219, end: 20060219
  5. MIDAZOLAM HCL [Concomitant]
     Dosage: 5 MG, UNK
     Route: 042
     Dates: start: 20060219, end: 20060219
  6. ZINACEF [Concomitant]
     Dosage: 1.5 G, UNK
     Route: 042
     Dates: start: 20060219, end: 20060219
  7. PLAVIX [Concomitant]
     Dosage: 75 MG, QD
     Route: 048
  8. ZOFRAN [Concomitant]
     Dosage: 4 MG, UNK
     Route: 042
     Dates: start: 20060219, end: 20060219
  9. TRASYLOL [Suspect]
     Indication: CORONARY ARTERY BYPASS
     Dosage: UNK
     Route: 042
     Dates: start: 20060219, end: 20060219
  10. ACETYLSALICYLIC ACID SRT [Concomitant]
     Dosage: 81 MG, QD
     Route: 048
  11. TOPROL-XL [Concomitant]
     Dosage: 50 MG, QD
     Route: 048
  12. PROTAMINE SULFATE [Concomitant]
     Dosage: 100 MG, UNK
     Route: 042
     Dates: start: 20060219, end: 20060219
  13. LIPITOR [Concomitant]
     Dosage: 80 MG, QD
     Route: 048
  14. ROCURONIUM BROMIDE [Concomitant]
     Dosage: 70 MG, UNK
     Route: 042
     Dates: start: 20060219, end: 20060219
  15. TORADOL [Concomitant]
     Dosage: 30 MG, UNK
     Route: 042
     Dates: start: 20060219, end: 20060219

REACTIONS (10)
  - RENAL INJURY [None]
  - RENAL IMPAIRMENT [None]
  - RENAL FAILURE [None]
  - EMOTIONAL DISTRESS [None]
  - ANXIETY [None]
  - INJURY [None]
  - STRESS [None]
  - UNEVALUABLE EVENT [None]
  - FEAR [None]
  - PAIN [None]
